FAERS Safety Report 9290489 (Version 5)
Quarter: 2014Q3

REPORT INFORMATION
  Report Type: Spontaneous
  Country: BR (occurrence: BR)
  Receive Date: 20130515
  Receipt Date: 20140909
  Transmission Date: 20150326
  Serious: Yes (Hospitalization, Other)
  Sender: FDA-Public Use
  Company Number: BR-PFIZER INC-2013146254

PATIENT
  Age: 48 Year
  Sex: Male
  Weight: 85 kg

DRUGS (6)
  1. TRAMAL [Concomitant]
     Active Substance: TRAMADOL
     Dosage: 100 MG, 1X/DAY
  2. SUTENT [Suspect]
     Active Substance: SUNITINIB MALATE
     Indication: GASTROINTESTINAL STROMAL CANCER
     Dosage: 50 MG, 1X/DAY
     Route: 048
     Dates: start: 201303, end: 2013
  3. NAPRIX [Concomitant]
     Active Substance: RAMIPRIL
     Dosage: 5 MG, 1X/DAY
     Route: 048
  4. SUTENT [Suspect]
     Active Substance: SUNITINIB MALATE
     Indication: GASTROINTESTINAL CARCINOMA
     Dosage: 50 MG, 1X/DAY, CYCLE 4 PER 2
     Dates: start: 20130508
  5. PROFENID [Concomitant]
     Active Substance: KETOPROFEN
     Dosage: 100 MG, 1X/DAY
  6. SUTENT [Suspect]
     Active Substance: SUNITINIB MALATE
     Dosage: 50 MG, 1X/DAY, CYCLE 2 PER 1
     Dates: start: 20130508

REACTIONS (15)
  - Haemorrhage [Unknown]
  - Haematochezia [Unknown]
  - Bedridden [Unknown]
  - Cheilitis [Not Recovered/Not Resolved]
  - Tumour pain [Unknown]
  - Asthenia [Recovered/Resolved]
  - Blister [Not Recovered/Not Resolved]
  - Anaemia [Recovered/Resolved]
  - Nausea [Unknown]
  - Rash [Not Recovered/Not Resolved]
  - Wound [Recovering/Resolving]
  - Pain in extremity [Not Recovered/Not Resolved]
  - Fatigue [Recovered/Resolved]
  - Muscular weakness [Unknown]
  - Dizziness [Recovered/Resolved]

NARRATIVE: CASE EVENT DATE: 2013
